FAERS Safety Report 18339577 (Version 1)
Quarter: 2020Q4

REPORT INFORMATION
  Report Type: Spontaneous
  Country: US (occurrence: US)
  Receive Date: 20201002
  Receipt Date: 20201002
  Transmission Date: 20210113
  Serious: Yes (Other)
  Sender: FDA-Public Use
  Company Number: NVSC2020US263045

PATIENT
  Age: 3 Year
  Sex: Female

DRUGS (1)
  1. OMNIPRED [Suspect]
     Active Substance: PREDNISOLONE ACETATE
     Indication: POSTOPERATIVE CARE
     Dosage: QID (IN ONE EYE FOR 2 YEARS)
     Route: 065

REACTIONS (1)
  - Adrenal suppression [Unknown]
